FAERS Safety Report 7798934-3 (Version None)
Quarter: 2011Q4

REPORT INFORMATION
  Report Type: 
  Country: None (occurrence: None)
  Receive Date: 20111005
  Receipt Date: 20111005
  Transmission Date: 20120403
  Serious: No
  Sender: FDA-Public Use
  Company Number: None

PATIENT
  Sex: Male
  Weight: 130.9 kg

DRUGS (3)
  1. PENTOSTATIN [Suspect]
     Dosage: 10 MG
  2. RITUXIMAB (MOAB C2B8 ANTI CD20, CHIMERIC) [Suspect]
     Dosage: 941 MG
  3. CYCLOPHOSPHAMIDE [Suspect]
     Dosage: 1506 MG

REACTIONS (1)
  - LYMPHOPENIA [None]
